FAERS Safety Report 9434351 (Version 2)
Quarter: 2013Q4

REPORT INFORMATION
  Report Type: Spontaneous
  Country: GB (occurrence: GB)
  Receive Date: 20130801
  Receipt Date: 20131115
  Transmission Date: 20140711
  Serious: Yes (Life-Threatening, Other)
  Sender: FDA-Public Use
  Company Number: GB-JNJFOC-20130714921

PATIENT
  Sex: Male

DRUGS (2)
  1. DUROGESIC DTRANS [Suspect]
     Indication: PAIN
     Route: 062
  2. DUROGESIC DTRANS [Suspect]
     Indication: ANALGESIC THERAPY
     Route: 062

REACTIONS (3)
  - Respiratory rate decreased [Recovered/Resolved]
  - Feeling abnormal [Not Recovered/Not Resolved]
  - Wrong technique in drug usage process [Unknown]
